FAERS Safety Report 20527095 (Version 1)
Quarter: 2022Q1

REPORT INFORMATION
  Report Type: Spontaneous
  Country: JP (occurrence: JP)
  Receive Date: 20220228
  Receipt Date: 20220228
  Transmission Date: 20220423
  Serious: Yes (Hospitalization)
  Sender: FDA-Public Use
  Company Number: JP-MYLANLABS-2022M1015152

PATIENT
  Age: 81 Year
  Sex: Male

DRUGS (1)
  1. BICALUTAMIDE [Suspect]
     Active Substance: BICALUTAMIDE
     Indication: Prostate cancer
     Dosage: ONGOING FOR OVER 3 YEARS
     Route: 065

REACTIONS (3)
  - Colitis microscopic [Recovered/Resolved]
  - Phlebitis [Recovered/Resolved]
  - Microscopic enteritis [Recovered/Resolved]
